FAERS Safety Report 5645107-6 (Version None)
Quarter: 2008Q1

REPORT INFORMATION
  Report Type: 
  Country: None (occurrence: None)
  Receive Date: 20080229
  Receipt Date: 20080219
  Transmission Date: 20080703
  Serious: Yes (Other)
  Sender: FDA-Public Use
  Company Number: AU-ROCHE-548294

PATIENT
  Sex: Female

DRUGS (2)
  1. VALIUM [Suspect]
     Indication: DRUG USE FOR UNKNOWN INDICATION
     Route: 065
  2. METHADONE HCL [Concomitant]

REACTIONS (3)
  - BIPOLAR I DISORDER [None]
  - OVERDOSE [None]
  - SUICIDAL IDEATION [None]
